FAERS Safety Report 6298046-4 (Version None)
Quarter: 2009Q3

REPORT INFORMATION
  Report Type: 
  Country: None (occurrence: None)
  Receive Date: 20090804
  Receipt Date: 20090804
  Transmission Date: 20100115
  Serious: No
  Sender: FDA-Public Use
  Company Number: None

PATIENT
  Sex: Female
  Weight: 7.2576 kg

DRUGS (1)
  1. ERRIN [Suspect]
     Indication: CONTRACEPTION
     Dosage: .35MG 1 DAILY PO
     Route: 048
     Dates: start: 20090301, end: 20090802

REACTIONS (3)
  - CONSTIPATION [None]
  - DRUG EXPOSURE VIA BREAST MILK [None]
  - FLATULENCE [None]
